FAERS Safety Report 15173282 (Version 2)
Quarter: 2018Q3

REPORT INFORMATION
  Report Type: Spontaneous
  Country: JP (occurrence: JP)
  Receive Date: 20180720
  Receipt Date: 20180929
  Transmission Date: 20181010
  Serious: Yes (Other)
  Sender: FDA-Public Use
  Company Number: JP-BRISTOL-MYERS SQUIBB COMPANY-BMS-2018-066489

PATIENT
  Age: 62 Year
  Sex: Male

DRUGS (3)
  1. SULFAMETHOXAZOLE AND TRIMETHOPRIM [Suspect]
     Active Substance: SULFAMETHOXAZOLE\TRIMETHOPRIM
     Indication: COLITIS
     Dosage: UNK
     Route: 048
     Dates: start: 201604, end: 20160501
  2. OPDIVO [Suspect]
     Active Substance: NIVOLUMAB
     Indication: NON-SMALL CELL LUNG CANCER
     Dosage: UNK
     Route: 041
     Dates: end: 201603
  3. LANSOPRAZOLE. [Suspect]
     Active Substance: LANSOPRAZOLE
     Indication: COLITIS
     Dosage: UNK
     Route: 065
     Dates: start: 20160420, end: 20160501

REACTIONS (5)
  - Stevens-Johnson syndrome [Recovering/Resolving]
  - Drug reaction with eosinophilia and systemic symptoms [Unknown]
  - Colitis [Unknown]
  - Renal disorder [Unknown]
  - Liver disorder [Unknown]
